FAERS Safety Report 4561218-0 (Version None)
Quarter: 2005Q1

REPORT INFORMATION
  Report Type: 
  Country: None (occurrence: None)
  Receive Date: 20050121
  Receipt Date: 20050119
  Transmission Date: 20050727
  Serious: Yes (Death)
  Sender: FDA-Public Use
  Company Number: J081-231-2711

PATIENT
  Age: 89 Year
  Sex: Female
  Weight: 44.5 kg

DRUGS (7)
  1. DONEPEZIL HCL [Suspect]
     Indication: DEMENTIA ALZHEIMER'S TYPE
     Dosage: 3 MG, 1 IN 1 D, ORAL
     Route: 048
     Dates: start: 20030226, end: 20030311
  2. DONEPEZIL HCL [Suspect]
     Indication: DEMENTIA ALZHEIMER'S TYPE
     Dosage: PLACEBO, 1 IN 1 D, ORAL
     Route: 048
     Dates: start: 20030129, end: 20030225
  3. BUFFERIN [Suspect]
     Indication: ANGINA PECTORIS
     Dosage: 81 MG, 1 IN 1 D, ORAL/BEFORE 10/22/2002-03/16/03
     Route: 048
  4. DIGOXIN [Suspect]
     Indication: ARRHYTHMIA
     Dosage: 0.125 MG, 1 IN 1 D, ORAL
     Route: 048
     Dates: start: 20030129, end: 20030316
  5. BUP-4 (PROPIVERINE HYDROCHLORIDE) [Concomitant]
  6. LENDORMIN D (BROTIZOLAM) [Concomitant]
  7. FLUITRAN (TRICHLORMETHIAZIDE) [Concomitant]

REACTIONS (8)
  - BLOOD PRESSURE IMMEASURABLE [None]
  - BLOOD PRESSURE SYSTOLIC INCREASED [None]
  - CARDIAC ARREST [None]
  - CARDIOMEGALY [None]
  - CEREBRAL ARTERY EMBOLISM [None]
  - CEREBRAL HAEMORRHAGE [None]
  - HYPERTENSION [None]
  - RESPIRATORY ARREST [None]
